FAERS Safety Report 6101337-0 (Version None)
Quarter: 2009Q1

REPORT INFORMATION
  Report Type: 
  Country: None (occurrence: None)
  Receive Date: 20090227
  Receipt Date: 20090216
  Transmission Date: 20090719
  Serious: Yes (Other)
  Sender: FDA-Public Use
  Company Number: 231759K09USA

PATIENT
  Age: 26 Year
  Sex: Female

DRUGS (8)
  1. REBIF [Suspect]
     Indication: MULTIPLE SCLEROSIS
     Dosage: 44 MCG, 3 IN 1 WEEKS, SUBCUTANEOUS
     Route: 058
     Dates: start: 20080521
  2. AMBIEN CR [Concomitant]
  3. TYLENOL PM (TYLENOL PM) [Concomitant]
  4. NEURONTIN [Concomitant]
  5. BACLOFEN [Concomitant]
  6. FLOMAX (MORNIFLUMATE) [Concomitant]
  7. NEXIUM [Concomitant]
  8. COLACE (DOCUSATE SODIUM) [Concomitant]

REACTIONS (2)
  - CARPAL TUNNEL SYNDROME [None]
  - INCISION SITE INFECTION [None]
